FAERS Safety Report 5989179-8 (Version None)
Quarter: 2008Q4

REPORT INFORMATION
  Report Type: 
  Country: None (occurrence: None)
  Receive Date: 20081210
  Receipt Date: 20081208
  Transmission Date: 20090506
  Serious: Yes (Hospitalization)
  Sender: FDA-Public Use
  Company Number: US-MERCK-0811USA02147

PATIENT
  Age: 37 Year
  Sex: Male

DRUGS (4)
  1. PROPECIA [Suspect]
     Indication: ANDROGENETIC ALOPECIA
     Route: 048
     Dates: start: 20080901, end: 20081101
  2. [THERAPY UNSPECIFIED] [Concomitant]
     Route: 065
  3. OXYCONTIN [Concomitant]
     Route: 065
  4. GLUCOSAMINE [Concomitant]
     Route: 065

REACTIONS (2)
  - ARTHROPATHY [None]
  - ERECTILE DYSFUNCTION [None]
